FAERS Safety Report 7245778-7 (Version None)
Quarter: 2011Q1

REPORT INFORMATION
  Report Type: 
  Country: None (occurrence: None)
  Receive Date: 20110126
  Receipt Date: 20110121
  Transmission Date: 20110831
  Serious: No
  Sender: FDA-Public Use
  Company Number: US-PFIZER INC-2011015607

PATIENT
  Sex: Female
  Weight: 64.853 kg

DRUGS (9)
  1. MULTI-VITAMINS [Concomitant]
     Dosage: UNK
  2. TOVIAZ [Suspect]
     Indication: HYPERTONIC BLADDER
     Dosage: 8 MG, DAILY
     Route: 048
     Dates: start: 20110103
  3. VALSARTAN [Concomitant]
     Indication: CARDIAC DISORDER
     Dosage: UNK
  4. ISORDIL [Concomitant]
     Indication: CARDIAC DISORDER
     Dosage: UNK
  5. VITAMIN D [Concomitant]
     Dosage: UNK
  6. ZANTAC [Concomitant]
     Indication: GASTRIC ULCER
     Dosage: UNK
  7. LOPID [Concomitant]
     Indication: CARDIAC DISORDER
     Dosage: UNK
  8. SYNTHROID [Concomitant]
     Indication: THYROID DISORDER
     Dosage: UNK
  9. FOLIC ACID [Concomitant]
     Dosage: UNK

REACTIONS (1)
  - DRUG INEFFECTIVE [None]
